FAERS Safety Report 15377113 (Version 1)
Quarter: 2018Q3

REPORT INFORMATION
  Report Type: Spontaneous
  Country: US (occurrence: US)
  Receive Date: 20180913
  Receipt Date: 20180913
  Transmission Date: 20181010
  Serious: Yes (Hospitalization)
  Sender: FDA-Public Use
  Company Number: US-ASTRAZENECA-2018SF15886

PATIENT
  Sex: Female
  Weight: 9.1 kg

DRUGS (5)
  1. REGLAN [Concomitant]
     Active Substance: METOCLOPRAMIDE HYDROCHLORIDE
     Route: 048
  2. ZANTAC [Concomitant]
     Active Substance: RANITIDINE HYDROCHLORIDE
     Route: 048
  3. ASPRIN [Concomitant]
     Active Substance: ASPIRIN
     Route: 048
  4. SYNAGIS [Suspect]
     Active Substance: PALIVIZUMAB
     Indication: RESPIRATORY DISORDER
     Dosage: MONTHLY
     Route: 065
  5. TADALAFIL [Concomitant]
     Active Substance: TADALAFIL
     Route: 048

REACTIONS (2)
  - Surgical failure [Unknown]
  - Shunt malfunction [Recovering/Resolving]
